FAERS Safety Report 9783994 (Version 1)
Quarter: 2013Q4

REPORT INFORMATION
  Report Type: Spontaneous
  Country: FR (occurrence: FR)
  Receive Date: 20131226
  Receipt Date: 20131226
  Transmission Date: 20140711
  Serious: Yes (Hospitalization)
  Sender: FDA-Public Use
  Company Number: FR-PFIZER INC-2013361819

PATIENT
  Age: 81 Year
  Sex: Female

DRUGS (7)
  1. TRUSOPT [Concomitant]
     Dosage: 1 GTT, 2X/DAY
     Route: 048
  2. KARDEGIC [Concomitant]
     Dosage: 75 MG, 1X/DAY
     Route: 048
  3. XALATAN [Suspect]
     Dosage: 1 GTT, 2X/DAY
     Route: 047
     Dates: end: 201309
  4. MIANSERIN HYDROCHLORIDE [Suspect]
     Dosage: 30 MG, 1X/DAY
     Route: 048
     Dates: end: 201309
  5. INEXIUM /01479302/ [Concomitant]
     Dosage: 20 MG, 1X/DAY
     Route: 048
  6. TIAPRIDAL [Concomitant]
     Dosage: 5 GTT, 3X/DAY
     Route: 048
     Dates: end: 201309
  7. LAMOTRIGINE [Concomitant]
     Dosage: 50 MG, 1X/DAY
     Route: 048

REACTIONS (4)
  - Sinus bradycardia [Recovered/Resolved]
  - Somnolence [Unknown]
  - Respiratory tract congestion [Unknown]
  - Oxygen saturation decreased [Recovering/Resolving]
